FAERS Safety Report 10633091 (Version 1)
Quarter: 2014Q4

REPORT INFORMATION
  Report Type: Spontaneous
  Country: US (occurrence: US)
  Receive Date: 20141205
  Receipt Date: 20141205
  Transmission Date: 20150529
  Serious: No
  Sender: FDA-Public Use
  Company Number: US-BRISTOL-MYERS SQUIBB COMPANY-21426515

PATIENT
  Age: 75 Year
  Sex: Female
  Weight: 74.83 kg

DRUGS (7)
  1. FENOFIBRATE. [Concomitant]
     Active Substance: FENOFIBRATE
  2. L-THYROXINE [Concomitant]
     Active Substance: LEVOTHYROXINE
  3. ZOCOR [Concomitant]
     Active Substance: SIMVASTATIN
  4. ELIQUIS [Suspect]
     Active Substance: APIXABAN
     Indication: CEREBROVASCULAR ACCIDENT PROPHYLAXIS
     Dosage: FROM 17JUL2014:2.5MG
     Dates: start: 20140222
  5. METOPROLOL [Concomitant]
     Active Substance: METOPROLOL
  6. SYNTHROID [Concomitant]
     Active Substance: LEVOTHYROXINE SODIUM
  7. NIFEDIPINE. [Concomitant]
     Active Substance: NIFEDIPINE

REACTIONS (1)
  - Epistaxis [Recovered/Resolved]
